FAERS Safety Report 6015051-3 (Version None)
Quarter: 2008Q4

REPORT INFORMATION
  Report Type: 
  Country: None (occurrence: None)
  Receive Date: 20081222
  Receipt Date: 20081215
  Transmission Date: 20090506
  Serious: Yes (Other)
  Sender: FDA-Public Use
  Company Number: AU-JNJFOC-20081204237

PATIENT
  Age: 39 Year
  Sex: Female

DRUGS (2)
  1. HALOPERIDOL DECANOATE [Suspect]
     Indication: DRUG USE FOR UNKNOWN INDICATION
     Route: 030
  2. LOVAZA [Concomitant]
     Route: 065

REACTIONS (7)
  - GINGIVAL BLEEDING [None]
  - GINGIVITIS [None]
  - JOINT STIFFNESS [None]
  - MOUTH ULCERATION [None]
  - SELF-INJURIOUS IDEATION [None]
  - TOOTHACHE [None]
  - VISUAL IMPAIRMENT [None]
